FAERS Safety Report 22862130 (Version 9)
Quarter: 2023Q4

REPORT INFORMATION
  Report Type: Report from Study
  Country: FI (occurrence: FI)
  Receive Date: 20230824
  Receipt Date: 20231121
  Transmission Date: 20240110
  Serious: Yes (Hospitalization)
  Sender: FDA-Public Use
  Company Number: FI-PFIZER INC-202300274388

PATIENT
  Age: 74 Year
  Sex: Male
  Weight: 70.5 kg

DRUGS (16)
  1. ELRANATAMAB [Suspect]
     Active Substance: ELRANATAMAB
     Indication: Plasma cell myeloma
     Dosage: 76 MG, WEEKLY
     Route: 058
     Dates: start: 20230717
  2. ACYCLOVIR [Concomitant]
     Active Substance: ACYCLOVIR
     Indication: Antiviral prophylaxis
     Dosage: 400 MG, 2X/DAY (Q12H)
     Route: 048
     Dates: start: 20230717
  3. ALLOPURINOL [Concomitant]
     Active Substance: ALLOPURINOL
     Indication: Prophylaxis
     Dosage: 300 MG, 1X/DAY
     Route: 048
     Dates: start: 20230717
  4. FILGRASTIM [Concomitant]
     Active Substance: FILGRASTIM
     Indication: Neutropenia
     Dosage: 30 MU/ML, OCCASIONAL
     Route: 058
     Dates: start: 20230720
  5. CALCIUM CARBONATE\CHOLECALCIFEROL [Concomitant]
     Active Substance: CALCIUM CARBONATE\CHOLECALCIFEROL
     Indication: Osteoporosis prophylaxis
     Dosage: [CALCIUM CARBONATE 500 UG]/[COLECALCIFEROL 10 UG], 2X/DAY (Q12H)
     Route: 048
     Dates: start: 20220622
  6. ACETAMINOPHEN [Concomitant]
     Active Substance: ACETAMINOPHEN
     Indication: Pain prophylaxis
     Dosage: 1000 MG, AS NEEDED
     Route: 048
     Dates: start: 20111001
  7. FINASTERIDE [Concomitant]
     Active Substance: FINASTERIDE
     Indication: Benign prostatic hyperplasia
     Dosage: 5 MG, 1X/DAY
     Route: 048
     Dates: start: 20180920
  8. POLYETHYLENE GLYCOL 4000 [Concomitant]
     Active Substance: POLYETHYLENE GLYCOL 4000
     Indication: Constipation prophylaxis
     Dosage: 12 G, 3X/DAY (Q8H)
     Route: 048
     Dates: start: 20221012
  9. TIZANIDINE [Concomitant]
     Active Substance: TIZANIDINE
     Indication: Pain prophylaxis
     Dosage: 6 MG, AS NEEDED
     Route: 048
     Dates: start: 20220304
  10. AMITRIPTYLINE HYDROCHLORIDE [Concomitant]
     Active Substance: AMITRIPTYLINE HYDROCHLORIDE
     Indication: Pain prophylaxis
     Dosage: 25 MG, 1X/DAY
     Route: 048
     Dates: start: 20220519
  11. ATORVASTATIN CALCIUM [Concomitant]
     Active Substance: ATORVASTATIN CALCIUM
     Indication: Dyslipidaemia
     Dosage: 20 MG, 1X/DAY
     Route: 048
     Dates: start: 20181113
  12. BISOPROLOL FUMARATE [Concomitant]
     Active Substance: BISOPROLOL FUMARATE
     Indication: Coronary artery disease
     Dosage: 0.125 MG, 1X/DAY
     Route: 048
     Dates: start: 20170628
  13. FUROSEMIDE [Concomitant]
     Active Substance: FUROSEMIDE
     Indication: Cardiac failure
     Dosage: 40 MG, 1X/DAY
     Route: 048
     Dates: start: 20220324, end: 20230808
  14. PANTOPRAZOLE [Concomitant]
     Active Substance: PANTOPRAZOLE
     Indication: Prophylaxis
     Dosage: 40 MG, 1X/DAY
     Route: 048
     Dates: start: 20221012
  15. SULFAMETHOXAZOLE\TRIMETHOPRIM [Concomitant]
     Active Substance: SULFAMETHOXAZOLE\TRIMETHOPRIM
     Indication: Antifungal prophylaxis
     Dosage: 1 TABLET, 3 TIMES PER WEEK
     Route: 048
     Dates: start: 20230717
  16. TAMSULOSIN HYDROCHLORIDE [Concomitant]
     Active Substance: TAMSULOSIN HYDROCHLORIDE
     Indication: Benign prostatic hyperplasia
     Dosage: 0.4 MG, 1X/DAY
     Route: 048
     Dates: start: 20180919

REACTIONS (1)
  - Hypotension [Recovered/Resolved]

NARRATIVE: CASE EVENT DATE: 20230809
